FAERS Safety Report 10538568 (Version 2)
Quarter: 2014Q4

REPORT INFORMATION
  Report Type: Spontaneous
  Country: US (occurrence: US)
  Receive Date: 20141023
  Receipt Date: 20141023
  Transmission Date: 20150529
  Serious: Yes (Death, Hospitalization, Other)
  Sender: FDA-Public Use
  Company Number: US-GLAXOSMITHKLINE-A0873044A

PATIENT
  Sex: Male

DRUGS (1)
  1. AVANDIA [Suspect]
     Active Substance: ROSIGLITAZONE MALEATE
     Indication: TYPE 2 DIABETES MELLITUS
     Dosage: 8 MG, QD
     Route: 048
     Dates: start: 200206, end: 200705

REACTIONS (7)
  - Sepsis [Fatal]
  - Pulmonary oedema [Unknown]
  - Arrhythmia [Fatal]
  - Atrial fibrillation [Unknown]
  - Chest pain [Unknown]
  - Acute coronary syndrome [Unknown]
  - Cardiac failure congestive [Unknown]
